FAERS Safety Report 5278445-X (Version None)
Quarter: 2007Q1

REPORT INFORMATION
  Report Type: 
  Country: None (occurrence: None)
  Receive Date: 20070328
  Receipt Date: 20070316
  Transmission Date: 20070707
  Serious: Yes (Other)
  Sender: FDA-Public Use
  Company Number: PHFR2007GB01061

PATIENT
  Age: 38 Year
  Sex: Male
  Weight: 80 kg

DRUGS (2)
  1. LAMISIL [Suspect]
     Indication: NAIL INFECTION
     Dosage: 250 MG, QD
     Route: 048
     Dates: start: 20050923
  2. ANALGESICS [Concomitant]
     Indication: PAIN

REACTIONS (3)
  - BRADYPHRENIA [None]
  - FEELING ABNORMAL [None]
  - MENTAL IMPAIRMENT [None]
